FAERS Safety Report 8579674-X (Version None)
Quarter: 2012Q3

REPORT INFORMATION
  Report Type: 
  Country: None (occurrence: None)
  Receive Date: 20120808
  Receipt Date: 20120802
  Transmission Date: 20120928
  Serious: Yes (Other)
  Sender: FDA-Public Use
  Company Number: GB-ROXANE LABORATORIES, INC.-2012-RO-01635RO

PATIENT
  Age: 68 Year
  Sex: Female

DRUGS (3)
  1. RAMIPRIL [Suspect]
     Indication: HYPERTENSION
     Dosage: 10 MG
     Route: 048
  2. BENDROFLUMETHIAZIDE [Suspect]
     Indication: HYPERTENSION
     Dosage: 2.5 MG
  3. LOSARTAN POTASSIUM [Suspect]
     Indication: HYPERTENSION
     Dosage: 50 MG
     Route: 048

REACTIONS (1)
  - DRY EYE [None]
